FAERS Safety Report 17355456 (Version 1)
Quarter: 2020Q1

REPORT INFORMATION
  Report Type: Spontaneous
  Country: DE (occurrence: DE)
  Receive Date: 20200131
  Receipt Date: 20200131
  Transmission Date: 20200409
  Serious: Yes (Other)
  Sender: FDA-Public Use
  Company Number: DE-009507513-2001DEU009802

PATIENT
  Sex: Female

DRUGS (1)
  1. JANUVIA [Suspect]
     Active Substance: SITAGLIPTIN PHOSPHATE

REACTIONS (5)
  - Mental impairment [Unknown]
  - Hip fracture [Unknown]
  - Sarcopenia [Unknown]
  - Decreased appetite [Unknown]
  - Decreased interest [Unknown]
